FAERS Safety Report 10272086 (Version 4)
Quarter: 2016Q4

REPORT INFORMATION
  Report Type: Report from Study
  Country: BR (occurrence: BR)
  Receive Date: 20140702
  Receipt Date: 20161013
  Transmission Date: 20170206
  Serious: Yes (Hospitalization, Other)
  Sender: FDA-Public Use
  Company Number: BR-ROCHE-1348767

PATIENT
  Age: 67 Year
  Sex: Female
  Weight: 64 kg

DRUGS (5)
  1. ARADOIS [Concomitant]
     Active Substance: LOSARTAN POTASSIUM
  2. FOLIC ACID. [Concomitant]
     Active Substance: FOLIC ACID
  3. MABTHERA [Suspect]
     Active Substance: RITUXIMAB
     Indication: RHEUMATOID ARTHRITIS
     Dosage: ON 26/JAN/2011, 19/JUL/2011, 02/AUG/2011, 16/JAN/2012, 30/JAN/2012, 27/JUL/2012, 10/AUG/2012, 15/AP
     Route: 042
     Dates: start: 20110112, end: 20140207
  4. ACTEMRA [Suspect]
     Active Substance: TOCILIZUMAB
     Indication: RHEUMATOID ARTHRITIS
     Dosage: 1 VIAL ONCE IN MONTH
     Route: 042
     Dates: start: 20160819
  5. METHOTREXATE. [Concomitant]
     Active Substance: METHOTREXATE

REACTIONS (12)
  - Mass [Not Recovered/Not Resolved]
  - Swelling [Not Recovered/Not Resolved]
  - Gastrointestinal pain [Not Recovered/Not Resolved]
  - Abdominal pain upper [Not Recovered/Not Resolved]
  - Hepatic enzyme increased [Unknown]
  - Breast cancer recurrent [Not Recovered/Not Resolved]
  - Abdominal pain [Not Recovered/Not Resolved]
  - Oral pain [Unknown]
  - Gingival erythema [Not Recovered/Not Resolved]
  - Toothache [Unknown]
  - Malaise [Not Recovered/Not Resolved]
  - Encephalitis viral [Recovering/Resolving]

NARRATIVE: CASE EVENT DATE: 20140208
